FAERS Safety Report 7675538-4 (Version None)
Quarter: 2011Q3

REPORT INFORMATION
  Report Type: 
  Country: None (occurrence: None)
  Receive Date: 20110810
  Receipt Date: 20110803
  Transmission Date: 20111222
  Serious: Yes (Other)
  Sender: FDA-Public Use
  Company Number: US-BAYER-201030085NA

PATIENT
  Age: 83 Year
  Sex: Male
  Weight: 88.435 kg

DRUGS (27)
  1. LASIX [Concomitant]
     Dosage: 40 MG, UNK
     Route: 042
     Dates: start: 20060808
  2. LEVOTHYROXINE SODIUM [Concomitant]
  3. AMICAR [Concomitant]
     Dosage: 5 G, UNK
     Route: 042
     Dates: start: 20060808
  4. RED BLOOD CELLS [Concomitant]
     Dosage: 4 U, UNK
     Route: 042
     Dates: start: 20060808
  5. PHENYLEPHRINE HCL [Concomitant]
     Dosage: UNK
     Route: 042
     Dates: start: 20060808
  6. FRESH FROZEN PLASMA [Concomitant]
     Dosage: 2 U, UNK
     Route: 042
     Dates: start: 20060808
  7. PLAVIX [Concomitant]
     Dosage: UNK
     Dates: start: 20060807
  8. LIDOCAINE [Concomitant]
     Dosage: UNK
     Dates: start: 20060808
  9. AGGRASTAT [Concomitant]
     Dosage: UNK
     Dates: start: 20060807
  10. FENTANYL [Concomitant]
  11. BUMEX [Concomitant]
     Dosage: UNK
     Dates: start: 20060808, end: 20060815
  12. LISINOPRIL [Concomitant]
     Indication: HYPERTENSION
  13. PROTAMINE [Concomitant]
     Dosage: 250 MG, UNK
     Route: 042
     Dates: start: 20060808
  14. ISOVUE-128 [Concomitant]
     Indication: CATHETERISATION CARDIAC
     Dosage: 40 CC
     Dates: start: 20060807
  15. EPINEPHRINE [Concomitant]
  16. MILRINONE [Concomitant]
     Dosage: 4.5 MG, OVER 10 MINUTES
     Route: 042
     Dates: start: 20060608
  17. ALBUMIN (HUMAN) [Concomitant]
     Dosage: 50 G, UNK
     Route: 042
     Dates: start: 20060808
  18. DOPAMINE HCL [Concomitant]
     Dosage: 5 MG, UNK
  19. FENTANYL [Concomitant]
     Dosage: 50 MG/CC, TOTAL 10 CC
     Route: 042
     Dates: start: 20060808
  20. VERSED [Concomitant]
     Dosage: 8 MG, UNK
     Route: 042
     Dates: start: 20060808
  21. NITROGLYCERIN [Concomitant]
  22. TRASYLOL [Suspect]
     Indication: CORONARY ARTERY BYPASS
     Route: 042
     Dates: start: 20060808, end: 20060808
  23. SIMVASTATIN [Concomitant]
     Indication: BLOOD CHOLESTEROL INCREASED
  24. AMICAR [Concomitant]
     Dosage: 50 MG, UNK
     Route: 042
     Dates: start: 20060808
  25. HEPARIN [Concomitant]
     Dosage: 10000 U, UNK
     Route: 042
     Dates: start: 20060808
  26. MANNITOL [Concomitant]
     Dosage: 12.5 MG, UNK
     Route: 042
     Dates: start: 20060808
  27. PLATELETS [Concomitant]
     Dosage: 20 U, UNK
     Route: 042
     Dates: start: 20060808

REACTIONS (14)
  - EMOTIONAL DISTRESS [None]
  - RENAL INJURY [None]
  - PAIN [None]
  - DEPRESSION [None]
  - RENAL IMPAIRMENT [None]
  - STRESS [None]
  - RENAL FAILURE [None]
  - FEAR [None]
  - ANHEDONIA [None]
  - MULTI-ORGAN FAILURE [None]
  - EMOTIONAL DISORDER [None]
  - ANXIETY [None]
  - INJURY [None]
  - DISABILITY [None]
